FAERS Safety Report 5240055-8 (Version None)
Quarter: 2007Q1

REPORT INFORMATION
  Report Type: 
  Country: None (occurrence: None)
  Receive Date: 20070216
  Receipt Date: 20070205
  Transmission Date: 20070707
  Serious: Yes (Other)
  Sender: FDA-Public Use
  Company Number: US-PFIZER INC-2007009863

PATIENT
  Sex: Male
  Weight: 71.7 kg

DRUGS (5)
  1. NEURONTIN [Suspect]
     Indication: PAIN
     Dates: start: 20070119, end: 20070124
  2. NEURONTIN [Interacting]
     Indication: BURNING SENSATION
  3. KLONOPIN [Interacting]
     Indication: SLEEP DISORDER
  4. PROSCAR [Concomitant]
  5. VITAMIN B COMPLEX CAP [Concomitant]

REACTIONS (4)
  - ACTIVITIES OF DAILY LIVING IMPAIRED [None]
  - DIZZINESS [None]
  - DRUG INTERACTION [None]
  - SOMNOLENCE [None]
